FAERS Safety Report 9889270 (Version 3)
Quarter: 2014Q1

REPORT INFORMATION
  Report Type: Report from Study
  Country: US (occurrence: US)
  Receive Date: 20140211
  Receipt Date: 20140227
  Transmission Date: 20141002
  Serious: Yes (Hospitalization)
  Sender: FDA-Public Use
  Company Number: US-ACTELION-A-NJ2014-94019

PATIENT
  Age: 59 Year
  Sex: Female

DRUGS (3)
  1. VELETRI [Suspect]
     Indication: PULMONARY ARTERIAL HYPERTENSION
     Dosage: 29.5 NG/KG, PER MIN
     Route: 042
     Dates: start: 20140116
  2. COUMADIN [Concomitant]
  3. LETAIRIS [Concomitant]

REACTIONS (9)
  - Pneumonia viral [Recovered/Resolved]
  - Pneumonia [Unknown]
  - Dyspnoea [Unknown]
  - Influenza [Unknown]
  - Pain in extremity [Recovered/Resolved]
  - Pain in jaw [Unknown]
  - Nasopharyngitis [Unknown]
  - Flushing [Recovered/Resolved]
  - Myalgia [Unknown]
